FAERS Safety Report 13302992 (Version 1)
Quarter: 2017Q1

REPORT INFORMATION
  Report Type: Spontaneous
  Country: PL (occurrence: PL)
  Receive Date: 20170307
  Receipt Date: 20170307
  Transmission Date: 20170428
  Serious: Yes (Hospitalization, Other)
  Sender: FDA-Public Use
  Company Number: PL-ARIAD-2017PL007863

PATIENT

DRUGS (1)
  1. ICLUSIG [Suspect]
     Active Substance: PONATINIB
     Indication: BLAST CRISIS IN MYELOGENOUS LEUKAEMIA
     Dosage: 45 MG, UNK
     Route: 048
     Dates: start: 20170131

REACTIONS (3)
  - Hepatic failure [Unknown]
  - Renal failure [Unknown]
  - Pyrexia [Unknown]

NARRATIVE: CASE EVENT DATE: 20170217
